APPROVED DRUG PRODUCT: HYDROXYZINE HYDROCHLORIDE
Active Ingredient: HYDROXYZINE HYDROCHLORIDE
Strength: 10MG/5ML
Dosage Form/Route: SYRUP;ORAL
Application: A087730 | Product #001
Applicant: KV PHARMACEUTICAL CO
Approved: Jul 1, 1982 | RLD: No | RS: No | Type: DISCN